FAERS Safety Report 18861766 (Version 1)
Quarter: 2021Q1

REPORT INFORMATION
  Report Type: Report from Study
  Country: JP (occurrence: JP)
  Receive Date: 20210209
  Receipt Date: 20210209
  Transmission Date: 20210420
  Serious: Yes (Other)
  Sender: FDA-Public Use
  Company Number: JP-SUN PHARMACEUTICAL INDUSTRIES LTD-2020R1-251122

PATIENT
  Age: 3 Year
  Sex: Female

DRUGS (7)
  1. CARBOPLATIN. [Suspect]
     Active Substance: CARBOPLATIN
     Indication: NEUROBLASTOMA
     Dosage: 1600 MILLIGRAM/SQ. METER , UNK
     Route: 065
  2. MELPHALAN. [Suspect]
     Active Substance: MELPHALAN
     Dosage: 40 MILLIGRAM/SQ. METER, DAILY
     Route: 065
  3. ETOPOSIDE. [Suspect]
     Active Substance: ETOPOSIDE
     Indication: NEUROBLASTOMA
     Dosage: 800 MILLIGRAM/SQ. METER , UNK
     Route: 065
  4. MELPHALAN. [Suspect]
     Active Substance: MELPHALAN
     Dosage: 100 MILLIGRAM/SQ. METER , UNK
     Route: 065
  5. MELPHALAN. [Suspect]
     Active Substance: MELPHALAN
     Dosage: 60 MILLIGRAM/SQ. METER, DAILY
     Route: 065
  6. BUSULFAN. [Suspect]
     Active Substance: BUSULFAN
     Indication: NEUROBLASTOMA
     Dosage: 1.2 X 16 MILLIGRAM/KILOGRAM , UNK
     Route: 042
  7. MELPHALAN. [Suspect]
     Active Substance: MELPHALAN
     Indication: NEUROBLASTOMA
     Dosage: 210 MILLIGRAM/SQ. METER , UNK
     Route: 065

REACTIONS (2)
  - Renal impairment [Recovering/Resolving]
  - Gastrointestinal mucosal disorder [Recovered/Resolved]
